FAERS Safety Report 7353071-7 (Version None)
Quarter: 2011Q1

REPORT INFORMATION
  Report Type: 
  Country: None (occurrence: None)
  Receive Date: 20110315
  Receipt Date: 20110314
  Transmission Date: 20110831
  Serious: Yes (Other)
  Sender: FDA-Public Use
  Company Number: B0704628A

PATIENT
  Age: 55 Year
  Sex: Male

DRUGS (1)
  1. AUGMENTIN '125' [Suspect]
     Route: 065

REACTIONS (3)
  - HEPATIC PAIN [None]
  - HAEMATEMESIS [None]
  - VOMITING [None]
